FAERS Safety Report 8800606 (Version 2)
Quarter: 2015Q1

REPORT INFORMATION
  Report Type: Report from Study
  Country: US (occurrence: US)
  Receive Date: 20120921
  Receipt Date: 20150302
  Transmission Date: 20150721
  Serious: Yes (Death, Hospitalization)
  Sender: FDA-Public Use
  Company Number: US-ROCHE-1103408

PATIENT
  Age: 56 Year
  Sex: Male
  Weight: 69.9 kg

DRUGS (5)
  1. ONDANSETRON HCL [Concomitant]
     Active Substance: ONDANSETRON HYDROCHLORIDE
     Dosage: RECEIVED ON 09/SEP/2008
     Route: 065
  2. AVASTIN [Suspect]
     Active Substance: BEVACIZUMAB
     Indication: METASTASES TO LUNG
  3. AVASTIN [Suspect]
     Active Substance: BEVACIZUMAB
     Indication: HYPOPHARYNGEAL CANCER
     Dosage: INFUSED OVER 90 MIN
     Route: 042
     Dates: start: 20080909
  4. SODIUM CHLORIDE. [Concomitant]
     Active Substance: SODIUM CHLORIDE
     Dosage: RECEIVED ON 09/SEP/2008; 50 ML
     Route: 065
  5. BORTEZOMIB [Concomitant]
     Active Substance: BORTEZOMIB
     Dosage: RECEIVED ON 09/SEP/2008
     Route: 042

REACTIONS (2)
  - Death [Fatal]
  - Facial pain [Unknown]

NARRATIVE: CASE EVENT DATE: 20080925
